FAERS Safety Report 9796796 (Version 3)
Quarter: 2014Q1

REPORT INFORMATION
  Report Type: Spontaneous
  Country: US (occurrence: US)
  Receive Date: 20140103
  Receipt Date: 20140114
  Transmission Date: 20141002
  Serious: Yes (Other)
  Sender: FDA-Public Use
  Company Number: CHPA2012US022378

PATIENT
  Sex: Female

DRUGS (4)
  1. VOLTAREN GEL [Suspect]
     Indication: PAIN
     Dosage: SOME ON MY FINGER, UNK
     Route: 061
  2. VOLTAREN GEL [Suspect]
     Indication: PAIN IN EXTREMITY
  3. VOLTAREN GEL [Suspect]
     Indication: OFF LABEL USE
  4. VOLTAREN GEL [Suspect]
     Indication: OSTEOARTHRITIS

REACTIONS (8)
  - Osteoporosis [Unknown]
  - Osteoarthritis [Unknown]
  - Pain [Recovered/Resolved]
  - Off label use [Unknown]
  - Therapeutic response unexpected [Unknown]
  - Wrong technique in drug usage process [Unknown]
  - Drug administered at inappropriate site [Unknown]
  - Therapeutic response decreased [Unknown]
